FAERS Safety Report 6558863-X (Version None)
Quarter: 2010Q1

REPORT INFORMATION
  Report Type: 
  Country: None (occurrence: None)
  Receive Date: 20100129
  Receipt Date: 20100118
  Transmission Date: 20100710
  Serious: Yes (Death)
  Sender: FDA-Public Use
  Company Number: KR-PFIZER INC-2010008468

PATIENT
  Age: 74 Year
  Sex: Female

DRUGS (1)
  1. ARGATROBAN [Suspect]
     Indication: BASAL GANGLIA INFARCTION
     Dosage: UNK
     Route: 042
     Dates: start: 20091201

REACTIONS (1)
  - DEATH [None]
